FAERS Safety Report 11693617 (Version 3)
Quarter: 2016Q1

REPORT INFORMATION
  Report Type: Report from Study
  Country: JP (occurrence: JP)
  Receive Date: 20151103
  Receipt Date: 20160307
  Transmission Date: 20160525
  Serious: Yes (Hospitalization)
  Sender: FDA-Public Use
  Company Number: JP-EISAI MEDICAL RESEARCH-EC-2015-011667

PATIENT
  Age: 64 Year
  Sex: Female
  Weight: 56 kg

DRUGS (6)
  1. LENVIMA [Suspect]
     Active Substance: LENVATINIB
     Route: 048
     Dates: start: 20150918
  2. LEVOTHYROXINE SODIUM HYDRATE [Concomitant]
  3. LENVIMA [Suspect]
     Active Substance: LENVATINIB
     Indication: POORLY DIFFERENTIATED THYROID CARCINOMA
     Route: 048
     Dates: start: 20150623, end: 20150707
  4. LENVIMA [Suspect]
     Active Substance: LENVATINIB
     Route: 048
     Dates: start: 20150718, end: 20150721
  5. LENVIMA [Suspect]
     Active Substance: LENVATINIB
     Route: 048
     Dates: start: 20150711, end: 20150713
  6. LENVIMA [Suspect]
     Active Substance: LENVATINIB
     Route: 048
     Dates: start: 20150725, end: 20150904

REACTIONS (1)
  - Proteinuria [Recovering/Resolving]

NARRATIVE: CASE EVENT DATE: 20150629
